FAERS Safety Report 5262490-4 (Version None)
Quarter: 2007Q1

REPORT INFORMATION
  Report Type: 
  Country: None (occurrence: None)
  Receive Date: 20070312
  Receipt Date: 20070227
  Transmission Date: 20070707
  Serious: Yes (Hospitalization)
  Sender: FDA-Public Use
  Company Number: PHRM2007FR00939

PATIENT
  Sex: Female

DRUGS (1)
  1. GLEEVEC [Suspect]
     Route: 048
     Dates: end: 20070217

REACTIONS (2)
  - GLOMERULONEPHRITIS [None]
  - RENAL FAILURE ACUTE [None]
